FAERS Safety Report 5343987-5 (Version None)
Quarter: 2007Q2

REPORT INFORMATION
  Report Type: 
  Country: None (occurrence: None)
  Receive Date: 20070604
  Receipt Date: 20070525
  Transmission Date: 20071010
  Serious: Yes (Hospitalization)
  Sender: FDA-Public Use
  Company Number: FR-AVENTIS-200712633EU

PATIENT
  Age: 71 Year
  Sex: Male

DRUGS (6)
  1. FLUDEX                             /00340101/ [Suspect]
     Indication: DRUG USE FOR UNKNOWN INDICATION
     Dosage: DOSE: UNK
     Route: 048
     Dates: end: 20070405
  2. ROVAMYCINE                         /00074401/ [Suspect]
     Indication: DRUG USE FOR UNKNOWN INDICATION
     Dosage: DOSE: UNK
     Route: 048
     Dates: end: 20070405
  3. KARDEGIC                           /00002703/ [Suspect]
     Indication: DRUG USE FOR UNKNOWN INDICATION
     Dosage: DOSE: UNK
     Route: 048
     Dates: end: 20070405
  4. ALLOPURINOL [Suspect]
     Indication: DRUG USE FOR UNKNOWN INDICATION
     Dosage: DOSE: UNK
     Route: 048
     Dates: end: 20070405
  5. SOTALOL HCL [Suspect]
     Indication: DRUG USE FOR UNKNOWN INDICATION
     Dosage: DOSE: UNK
     Route: 048
     Dates: end: 20070405
  6. TETRAZEPAM [Suspect]
     Indication: DRUG USE FOR UNKNOWN INDICATION
     Dosage: DOSE: UNK
     Route: 048
     Dates: start: 20070324, end: 20070324

REACTIONS (4)
  - EOSINOPHIL COUNT INCREASED [None]
  - HAEMOLYTIC ANAEMIA [None]
  - HEPATITIS CHOLESTATIC [None]
  - RASH [None]
